FAERS Safety Report 11454340 (Version 1)
Quarter: 2015Q3

REPORT INFORMATION
  Report Type: Spontaneous
  Country: US (occurrence: US)
  Receive Date: 20150831
  Receipt Date: 20150831
  Transmission Date: 20151125
  Serious: Yes (Hospitalization)
  Sender: FDA-Public Use
  Company Number: US-ELI_LILLY_AND_COMPANY-US201003003719

PATIENT
  Sex: Male

DRUGS (13)
  1. METHOTREXATE [Concomitant]
     Active Substance: METHOTREXATE
  2. FOLIC ACID. [Concomitant]
     Active Substance: FOLIC ACID
  3. VITAMIN D [Concomitant]
     Active Substance: CHOLECALCIFEROL
  4. METHADONE [Concomitant]
     Active Substance: METHADONE HYDROCHLORIDE
  5. FORTEO [Concomitant]
     Active Substance: TERIPARATIDE
     Indication: OSTEOPOROSIS
     Dosage: 20 UG, DAILY (1/D)
     Dates: start: 201001
  6. PHENYTOIN. [Concomitant]
     Active Substance: PHENYTOIN
  7. TRAZODONE [Concomitant]
     Active Substance: TRAZODONE HYDROCHLORIDE
  8. NEXIUM [Concomitant]
     Active Substance: ESOMEPRAZOLE MAGNESIUM
  9. CYMBALTA [Suspect]
     Active Substance: DULOXETINE HYDROCHLORIDE
     Indication: DEPRESSION
     Dosage: 60 MG, 2/D
  10. ASCORBIC ACID. [Concomitant]
     Active Substance: ASCORBIC ACID
  11. PREDNISONE. [Concomitant]
     Active Substance: PREDNISONE
  12. ATIVAN [Concomitant]
     Active Substance: LORAZEPAM
  13. LIDODERM [Concomitant]
     Active Substance: LIDOCAINE
     Route: 062

REACTIONS (2)
  - Depression [Unknown]
  - Drug ineffective [Unknown]

NARRATIVE: CASE EVENT DATE: 2010
